FAERS Safety Report 16669673 (Version 1)
Quarter: 2019Q3

REPORT INFORMATION
  Report Type: Spontaneous
  Country: FR (occurrence: FR)
  Receive Date: 20190805
  Receipt Date: 20190805
  Transmission Date: 20191004
  Serious: Yes (Hospitalization)
  Sender: FDA-Public Use
  Company Number: FR-TEVA-2019-FR-1087601

PATIENT
  Age: 2 Month
  Sex: Female
  Weight: 4.3 kg

DRUGS (3)
  1. CARBOPLATINE ACCORD [Suspect]
     Active Substance: CARBOPLATIN
     Indication: NEUROBLASTOMA
     Dosage: 28 MILLIGRAM DAILY;
     Route: 041
     Dates: start: 20180518, end: 20180520
  2. ETOPOSIDE TEVA [Suspect]
     Active Substance: ETOPOSIDE
     Indication: NEUROBLASTOMA
     Dosage: 21 MILLIGRAM DAILY;
     Route: 041
     Dates: start: 20180518, end: 20180520
  3. ZOPHREN [Concomitant]
     Active Substance: ONDANSETRON
     Indication: PROPHYLAXIS OF NAUSEA AND VOMITING
     Route: 042
     Dates: start: 20180518, end: 20180520

REACTIONS (1)
  - Febrile neutropenia [Recovered/Resolved]

NARRATIVE: CASE EVENT DATE: 20180601
